FAERS Safety Report 8511271 (Version 3)
Quarter: 2016Q4

REPORT INFORMATION
  Report Type: Spontaneous
  Country: US (occurrence: US)
  Receive Date: 20120413
  Receipt Date: 20161123
  Transmission Date: 20170207
  Serious: Yes (Other)
  Sender: FDA-Public Use
  Company Number: US-ASTRAZENECA-2011SE64112

PATIENT
  Age: 65 Year
  Sex: Female

DRUGS (9)
  1. SYNTHROID [Concomitant]
     Active Substance: LEVOTHYROXINE SODIUM
     Route: 065
  2. MOBIC [Concomitant]
     Active Substance: MELOXICAM
     Route: 065
  3. TENORMIN [Suspect]
     Active Substance: ATENOLOL
     Dosage: GENERIC
     Route: 065
  4. NITROSTAT [Concomitant]
     Active Substance: NITROGLYCERIN
     Route: 065
  5. COMBIVENT [Concomitant]
     Active Substance: ALBUTEROL SULFATE\IPRATROPIUM BROMIDE
     Route: 065
  6. XOPENEX [Concomitant]
     Active Substance: LEVALBUTEROL HYDROCHLORIDE
     Route: 065
  7. TENORMIN [Suspect]
     Active Substance: ATENOLOL
     Route: 065
  8. NEXIUM 24HR [Suspect]
     Active Substance: ESOMEPRAZOLE MAGNESIUM
     Route: 048
  9. NEXIUM [Suspect]
     Active Substance: ESOMEPRAZOLE MAGNESIUM
     Indication: GASTROOESOPHAGEAL REFLUX DISEASE
     Route: 048

REACTIONS (16)
  - Dry throat [Unknown]
  - Intentional product misuse [Unknown]
  - Spinal column injury [Unknown]
  - Fall [Unknown]
  - Drug ineffective [Unknown]
  - Lip pain [Unknown]
  - Malaise [Unknown]
  - Abdominal discomfort [Unknown]
  - Tongue ulceration [Unknown]
  - Diarrhoea [Unknown]
  - Bladder disorder [Unknown]
  - Haematemesis [Unknown]
  - Abdominal pain upper [Unknown]
  - Pharyngitis [Unknown]
  - Back pain [Unknown]
  - Renal disorder [Unknown]
